FAERS Safety Report 7564395-2 (Version None)
Quarter: 2011Q2

REPORT INFORMATION
  Report Type: 
  Country: None (occurrence: None)
  Receive Date: 20110622
  Receipt Date: 20110609
  Transmission Date: 20111010
  Serious: Yes (Other)
  Sender: FDA-Public Use
  Company Number: PHHY2011AT36786

PATIENT
  Age: 87 Year
  Sex: Female

DRUGS (1)
  1. EXELON [Suspect]
     Indication: DEMENTIA ALZHEIMER'S TYPE
     Dosage: 4.6 MG/24 HOURS
     Route: 062

REACTIONS (3)
  - PAIN [None]
  - PARESIS [None]
  - EXTRAPYRAMIDAL DISORDER [None]
